FAERS Safety Report 20995356 (Version 1)
Quarter: 2022Q2

REPORT INFORMATION
  Report Type: Spontaneous
  Country: US (occurrence: US)
  Receive Date: 20220622
  Receipt Date: 20220622
  Transmission Date: 20220721
  Serious: Yes (Disabling, Other)
  Sender: FDA-Public Use
  Company Number: US-GILEAD-2022-0586765

PATIENT
  Age: 26 Year
  Sex: Male

DRUGS (1)
  1. DESCOVY [Suspect]
     Active Substance: EMTRICITABINE\TENOFOVIR ALAFENAMIDE FUMARATE
     Indication: Product used for unknown indication
     Dosage: 1 DOSAGE FORM, TAKEN AT 5 PM
     Route: 065

REACTIONS (6)
  - Paraesthesia [Unknown]
  - Back pain [Unknown]
  - Neuropathy peripheral [Unknown]
  - Pain [Unknown]
  - Asthenia [Unknown]
  - Penis disorder [Unknown]
